FAERS Safety Report 8353226-9 (Version None)
Quarter: 2012Q2

REPORT INFORMATION
  Report Type: 
  Country: None (occurrence: None)
  Receive Date: 20120511
  Receipt Date: 20120503
  Transmission Date: 20120825
  Serious: Yes (Hospitalization)
  Sender: FDA-Public Use
  Company Number: US-ASTRAZENECA-2012SE10833

PATIENT
  Age: 55 Year
  Sex: Female

DRUGS (5)
  1. PULMICORT FLEXHALER [Suspect]
     Route: 055
  2. TOPROL-XL [Suspect]
     Route: 048
  3. ACCOLATE [Suspect]
     Route: 048
  4. RHINOCORT [Suspect]
     Route: 045
  5. NEXIUM [Suspect]
     Route: 048

REACTIONS (6)
  - RESPIRATORY DISORDER [None]
  - CHRONIC OBSTRUCTIVE PULMONARY DISEASE [None]
  - BRONCHITIS [None]
  - MULTIPLE ALLERGIES [None]
  - ASTHMA [None]
  - MALAISE [None]
